FAERS Safety Report 5055014-8 (Version None)
Quarter: 2006Q3

REPORT INFORMATION
  Report Type: 
  Country: None (occurrence: None)
  Receive Date: 20060719
  Receipt Date: 20060710
  Transmission Date: 20061208
  Serious: Yes (Other)
  Sender: FDA-Public Use
  Company Number: GB-JNJFOC-20060700948

PATIENT
  Sex: Male

DRUGS (1)
  1. HALDOL [Suspect]
     Indication: AGITATION
     Route: 030

REACTIONS (1)
  - LACUNAR INFARCTION [None]
